FAERS Safety Report 12493531 (Version 1)
Quarter: 2016Q2

REPORT INFORMATION
  Report Type: Spontaneous
  Country: US (occurrence: US)
  Receive Date: 20160623
  Receipt Date: 20160623
  Transmission Date: 20160815
  Serious: Yes (Other)
  Sender: FDA-Public Use
  Company Number: US-WATSON-2016-13137

PATIENT
  Age: 68 Year
  Sex: Male

DRUGS (1)
  1. DILTIAZEM HCL ER (LA) (ACTAVIS LABORATORIES FL) [Suspect]
     Active Substance: DILTIAZEM HYDROCHLORIDE
     Indication: CARDIAC DISORDER
     Dosage: 360 MG, DAILY
     Route: 048
     Dates: start: 201509

REACTIONS (5)
  - Dyspnoea [Recovered/Resolved]
  - Peripheral swelling [Recovered/Resolved]
  - Blood pressure abnormal [Recovered/Resolved]
  - Asthenia [Recovered/Resolved]
  - Drug dispensing error [Recovered/Resolved]

NARRATIVE: CASE EVENT DATE: 2015
